FAERS Safety Report 4457686-5 (Version None)
Quarter: 2004Q3

REPORT INFORMATION
  Report Type: 
  Country: None (occurrence: None)
  Receive Date: 20040831
  Receipt Date: 20040608
  Transmission Date: 20050211
  Serious: No
  Sender: FDA-Public Use
  Company Number: MPS1-10240

PATIENT
  Age: 3 Year
  Sex: Female
  Weight: 15.1 kg

DRUGS (6)
  1. ALDURAZYME [Suspect]
     Indication: MUCOPOLYSACCHARIDOSIS IH
     Dosage: 2.2 MG IV
     Route: 042
     Dates: start: 20031028, end: 20031118
  2. ALBUTEROL [Concomitant]
  3. FLOVENT [Concomitant]
  4. REGLAN [Concomitant]
  5. PEPCID [Concomitant]
  6. DIURIL [Concomitant]

REACTIONS (4)
  - CHEST DISCOMFORT [None]
  - FLUSHING [None]
  - HYPERHIDROSIS [None]
  - RESPIRATORY DISTRESS [None]
